FAERS Safety Report 8317955-5 (Version None)
Quarter: 2012Q2

REPORT INFORMATION
  Report Type: 
  Country: None (occurrence: None)
  Receive Date: 20120427
  Receipt Date: 20120420
  Transmission Date: 20120825
  Serious: Yes (Hospitalization)
  Sender: FDA-Public Use
  Company Number: US-BAYER-2010-005844

PATIENT
  Age: 26 Year
  Sex: Female
  Weight: 77 kg

DRUGS (7)
  1. PAROXETINE [Concomitant]
  2. ALPRAZOLAM [Concomitant]
  3. PAROXETINE [Concomitant]
  4. CELEXA [Concomitant]
  5. PAXIL [Concomitant]
     Dosage: UNK
     Dates: start: 20090901
  6. DROSPIRENONE AND ETHINYL ESTRADIOL [Suspect]
     Indication: ASSISTED FERTILISATION
     Dosage: UNK
     Dates: start: 20090101, end: 20090101
  7. XANAX [Concomitant]
     Indication: ANXIETY

REACTIONS (11)
  - GASTROOESOPHAGEAL REFLUX DISEASE [None]
  - DYSPEPSIA [None]
  - ANXIETY [None]
  - EMOTIONAL DISTRESS [None]
  - DYSPNOEA [None]
  - ABDOMINAL DISTENSION [None]
  - GENERAL PHYSICAL HEALTH DETERIORATION [None]
  - CHOLELITHIASIS [None]
  - CHOLECYSTITIS ACUTE [None]
  - CHEST PAIN [None]
  - ABDOMINAL PAIN [None]
